APPROVED DRUG PRODUCT: CIPROFLOXACIN HYDROCHLORIDE
Active Ingredient: CIPROFLOXACIN HYDROCHLORIDE
Strength: EQ 500MG BASE
Dosage Form/Route: TABLET;ORAL
Application: A076136 | Product #002
Applicant: TEVA PHARMACEUTICALS USA INC
Approved: Jun 9, 2004 | RLD: No | RS: No | Type: DISCN